FAERS Safety Report 9112314 (Version 1)
Quarter: 2013Q1

REPORT INFORMATION
  Report Type: Spontaneous
  Country: US (occurrence: US)
  Receive Date: 20130219
  Receipt Date: 20130219
  Transmission Date: 20140127
  Serious: Yes (Other)
  Sender: FDA-Public Use
  Company Number: US-BRISTOL-MYERS SQUIBB COMPANY-16659104

PATIENT
  Age: 38 Year
  Sex: Male

DRUGS (3)
  1. ORENCIA [Suspect]
     Indication: POLYARTHRITIS
     Dosage: ALSO TAKEN SUQ INJ
     Route: 042
     Dates: start: 20120523
  2. ORENCIA [Suspect]
     Indication: ARTHRITIS REACTIVE
     Dosage: ALSO TAKEN SUQ INJ
     Route: 042
     Dates: start: 20120523
  3. COLCRYS [Concomitant]

REACTIONS (2)
  - Urticaria [Recovered/Resolved]
  - Chest discomfort [Recovered/Resolved]
